FAERS Safety Report 4517915-6 (Version None)
Quarter: 2004Q4

REPORT INFORMATION
  Report Type: 
  Country: None (occurrence: None)
  Receive Date: 20041203
  Receipt Date: 20041201
  Transmission Date: 20050328
  Serious: Yes (Hospitalization)
  Sender: FDA-Public Use
  Company Number: AU-MERCK-0412AUS00014

PATIENT
  Sex: Female

DRUGS (6)
  1. VIOXX [Suspect]
     Route: 048
  2. VIOXX [Suspect]
     Route: 048
     Dates: start: 20020101
  3. VIOXX [Suspect]
     Route: 048
     Dates: end: 20040101
  4. IRBESARTAN [Concomitant]
     Route: 065
     Dates: start: 19990101
  5. VITAMIN E [Concomitant]
     Route: 065
  6. GLUCOSAMINE [Concomitant]
     Route: 065

REACTIONS (1)
  - AORTIC OCCLUSION [None]
